FAERS Safety Report 12273782 (Version 1)
Quarter: 2016Q2

REPORT INFORMATION
  Report Type: Spontaneous
  Country: US (occurrence: US)
  Receive Date: 20160415
  Receipt Date: 20160415
  Transmission Date: 20160815
  Serious: Yes (Hospitalization)
  Sender: FDA-Public Use
  Company Number: US-ASTRAZENECA-2016SE38611

PATIENT
  Age: 74 Year
  Sex: Female
  Weight: 74.8 kg

DRUGS (2)
  1. CRESTOR [Suspect]
     Active Substance: ROSUVASTATIN CALCIUM
     Indication: BLOOD CHOLESTEROL INCREASED
     Route: 048
     Dates: start: 2012
  2. CRESTOR [Suspect]
     Active Substance: ROSUVASTATIN CALCIUM
     Indication: BLOOD TRIGLYCERIDES INCREASED
     Route: 048
     Dates: start: 2012

REACTIONS (11)
  - Gait disturbance [Unknown]
  - Oesophageal discomfort [Not Recovered/Not Resolved]
  - Pharyngeal dyskinesia [Unknown]
  - Hypertension [Unknown]
  - Seizure [Unknown]
  - Cerebrovascular accident [Unknown]
  - Weight decreased [Unknown]
  - Intracranial aneurysm [Unknown]
  - Muscle tone disorder [Unknown]
  - Anxiety [Unknown]
  - Hypersensitivity [Unknown]

NARRATIVE: CASE EVENT DATE: 2014
